FAERS Safety Report 6565880-2 (Version None)
Quarter: 2010Q1

REPORT INFORMATION
  Report Type: 
  Country: None (occurrence: None)
  Receive Date: 20100126
  Receipt Date: 20100118
  Transmission Date: 20100710
  Serious: Yes (Hospitalization)
  Sender: FDA-Public Use
  Company Number: 2010SP003608

PATIENT
  Age: 48 Year
  Sex: Male

DRUGS (2)
  1. REBETOL [Suspect]
     Indication: HEPATITIS C
     Dosage: 1200 MG; BID; PO
     Route: 048
     Dates: start: 20060525, end: 20070423
  2. PEGASYS [Suspect]
     Indication: HEPATITIS C
     Dosage: 180 MG; QW; SC
     Route: 058
     Dates: start: 20060525, end: 20070423

REACTIONS (1)
  - CONGESTIVE CARDIOMYOPATHY [None]
